FAERS Safety Report 24769713 (Version 1)
Quarter: 2024Q4

REPORT INFORMATION
  Report Type: Spontaneous
  Country: IT (occurrence: IT)
  Receive Date: 20241224
  Receipt Date: 20241224
  Transmission Date: 20250115
  Serious: Yes (Hospitalization, Other)
  Sender: NOVITIUM PHARMA
  Company Number: IT-NOVITIUMPHARMA-2024ITNVP02931

PATIENT
  Age: 54 Year
  Sex: Male

DRUGS (12)
  1. DEXAMETHASONE [Suspect]
     Active Substance: DEXAMETHASONE
     Indication: Plasma cell myeloma
     Route: 042
  2. DEXAMETHASONE [Suspect]
     Active Substance: DEXAMETHASONE
     Indication: Immune enhancement therapy
     Dates: start: 202209, end: 202308
  3. BORTEZOMIB [Concomitant]
     Active Substance: BORTEZOMIB
     Indication: Plasma cell myeloma
  4. THALIDOMIDE [Concomitant]
     Active Substance: THALIDOMIDE
     Indication: Plasma cell myeloma
  5. LENALIDOMIDE [Concomitant]
     Active Substance: LENALIDOMIDE
     Indication: Plasma cell myeloma
  6. ISATUXIMAB [Concomitant]
     Active Substance: ISATUXIMAB
     Indication: Plasma cell myeloma
     Dates: start: 202209
  7. CARFILZOMIB [Concomitant]
     Active Substance: CARFILZOMIB
     Indication: Plasma cell myeloma
     Dates: start: 202209
  8. ELOTUZUMAB [Concomitant]
     Active Substance: ELOTUZUMAB
     Indication: Plasma cell myeloma
  9. POMALIDOMIDE [Concomitant]
     Active Substance: POMALIDOMIDE
     Indication: Plasma cell myeloma
  10. TRANEXAMIC ACID [Concomitant]
     Active Substance: TRANEXAMIC ACID
     Indication: Haemorrhage prophylaxis
     Route: 042
  11. VITAMIN K [Concomitant]
     Active Substance: PHYTONADIONE
     Indication: Product used for unknown indication
     Route: 042
  12. CYCLOPHOSPHAMIDE [Concomitant]
     Active Substance: CYCLOPHOSPHAMIDE

REACTIONS (1)
  - Neutropenia [Unknown]
